FAERS Safety Report 7137068-8 (Version None)
Quarter: 2010Q4

REPORT INFORMATION
  Report Type: 
  Country: None (occurrence: None)
  Receive Date: 20101206
  Receipt Date: 20100114
  Transmission Date: 20110411
  Serious: Yes (Death)
  Sender: FDA-Public Use
  Company Number: US-ACTELION-A-NJ2009-27366

PATIENT

DRUGS (4)
  1. TRACLEER [Suspect]
     Indication: PULMONARY ARTERIAL HYPERTENSION
     Route: 048
     Dates: start: 20081231
  2. REMODULIN [Concomitant]
  3. REVATIO [Concomitant]
  4. COMBIVENT [Concomitant]

REACTIONS (3)
  - DEATH [None]
  - DYSPHONIA [None]
  - EAR PAIN [None]
